FAERS Safety Report 6103733-4 (Version None)
Quarter: 2009Q1

REPORT INFORMATION
  Report Type: 
  Country: None (occurrence: None)
  Receive Date: 20090305
  Receipt Date: 20090225
  Transmission Date: 20090719
  Serious: Yes (Hospitalization)
  Sender: FDA-Public Use
  Company Number: PHHY2008NZ33590

PATIENT
  Sex: Male

DRUGS (2)
  1. CLOZARIL [Suspect]
     Indication: DEMENTIA
     Dosage: 25 MG, 1.5 TAB NOCTE
     Route: 048
     Dates: start: 20061027
  2. CLOZARIL [Suspect]
     Indication: ABNORMAL BEHAVIOUR

REACTIONS (1)
  - DEMENTIA [None]
